FAERS Safety Report 8623614-1 (Version None)
Quarter: 2012Q3

REPORT INFORMATION
  Report Type: 
  Country: None (occurrence: None)
  Receive Date: 20120827
  Receipt Date: 20120815
  Transmission Date: 20120928
  Serious: Yes (Hospitalization)
  Sender: FDA-Public Use
  Company Number: DE-ELI_LILLY_AND_COMPANY-DE201208004694

PATIENT
  Sex: Male

DRUGS (7)
  1. PHENHYDAN                          /00017402/ [Concomitant]
     Indication: NERVOUS SYSTEM DISORDER
     Dosage: UNK
  2. METOPROLOL SUCCINATE [Concomitant]
     Dosage: UNK
  3. DEKRISTOL [Concomitant]
     Dosage: UNK
  4. TORSEMIDE [Concomitant]
     Indication: OEDEMA
     Dosage: UNK
  5. CALCIUM [Concomitant]
     Dosage: UNK
  6. FORTEO [Suspect]
     Indication: OSTEOPOROSIS
     Dosage: 20 UG, QD
     Route: 058
     Dates: start: 20101114
  7. MARCUMAR [Concomitant]
     Dosage: UNK

REACTIONS (3)
  - CHOLECYSTITIS [None]
  - PAIN [None]
  - PYREXIA [None]
